FAERS Safety Report 11635699 (Version 1)
Quarter: 2015Q4

REPORT INFORMATION
  Report Type: Spontaneous
  Country: US (occurrence: US)
  Receive Date: 20151016
  Receipt Date: 20151016
  Transmission Date: 20160304
  Serious: No
  Sender: FDA-Public Use
  Company Number: US-PFIZER INC-2015342917

PATIENT
  Sex: Male

DRUGS (2)
  1. VIAGRA [Concomitant]
     Active Substance: SILDENAFIL CITRATE
     Indication: ERECTILE DYSFUNCTION
  2. CHANTIX [Suspect]
     Active Substance: VARENICLINE TARTRATE
     Indication: ERECTILE DYSFUNCTION
     Dosage: UNK

REACTIONS (2)
  - Drug ineffective for unapproved indication [Not Recovered/Not Resolved]
  - Tobacco user [Unknown]
